FAERS Safety Report 23778809 (Version 1)
Quarter: 2024Q2

REPORT INFORMATION
  Report Type: Report from Study
  Country: MX (occurrence: MX)
  Receive Date: 20240424
  Receipt Date: 20240424
  Transmission Date: 20240715
  Serious: Yes (Other)
  Sender: FDA-Public Use
  Company Number: MX-002147023-NVSC2024MX086199

PATIENT
  Sex: Male

DRUGS (8)
  1. MYFORTIC [Suspect]
     Active Substance: MYCOPHENOLATE SODIUM
     Indication: Renal transplant
     Dosage: 2 DOSAGE FORM, BID (MORNING AND NIGHT)
     Route: 048
     Dates: start: 20230321
  2. MYFORTIC [Suspect]
     Active Substance: MYCOPHENOLATE SODIUM
     Dosage: 4 DOSAGE FORM, 1 IN THE MORNING /1 IN THE AFTERNOON / 2 AT NIGHT
     Route: 065
  3. MYFORTIC [Suspect]
     Active Substance: MYCOPHENOLATE SODIUM
     Dosage: 3 DOSAGE FORM, 1 IN THE  MORNING / 2  AT NIGHT
     Route: 065
     Dates: start: 202311
  4. IMURAN [Suspect]
     Active Substance: AZATHIOPRINE
     Indication: Renal transplant
     Dosage: UNK
     Route: 065
  5. VALCYTE [Concomitant]
     Active Substance: VALGANCICLOVIR HYDROCHLORIDE
     Indication: Renal transplant
     Dosage: UNK
     Route: 065
  6. PROGRAF [Concomitant]
     Active Substance: TACROLIMUS
     Indication: Renal transplant
     Dosage: 1 MG
     Route: 065
  7. PROGRAF [Concomitant]
     Active Substance: TACROLIMUS
     Indication: Renal transplant
     Dosage: 1 MG
     Route: 065
  8. METICORTEN [Concomitant]
     Active Substance: PREDNISONE
     Indication: Renal transplant
     Dosage: UNK
     Route: 065

REACTIONS (4)
  - Transplant rejection [Unknown]
  - Disease recurrence [Unknown]
  - Abdominal pain upper [Unknown]
  - Off label use [Unknown]
